FAERS Safety Report 24185338 (Version 1)
Quarter: 2024Q3

REPORT INFORMATION
  Report Type: Report from Study
  Country: FR (occurrence: FR)
  Receive Date: 20240807
  Receipt Date: 20240807
  Transmission Date: 20241016
  Serious: Yes (Other)
  Sender: AMGEN
  Company Number: FR-AMGEN-FRANI2024154654

PATIENT
  Age: 50 Year
  Sex: Female
  Weight: 126 kg

DRUGS (9)
  1. TRASTUZUMAB [Suspect]
     Active Substance: TRASTUZUMAB
     Indication: HER2 positive breast cancer
     Dosage: 8 MILLIGRAM/KILOGRAM, CYCLICAL
     Route: 042
     Dates: start: 20210219
  2. TRASTUZUMAB [Suspect]
     Active Substance: TRASTUZUMAB
     Dosage: 6 MILLIGRAM/KILOGRAM, CYCLICAL
     Route: 042
     Dates: start: 20210312
  3. TUCATINIB [Suspect]
     Active Substance: TUCATINIB
     Indication: HER2 positive breast cancer
     Dosage: 300 MILLIGRAM, BID
     Route: 048
     Dates: start: 20210219, end: 20210319
  4. TUCATINIB [Suspect]
     Active Substance: TUCATINIB
     Dosage: 500 MILLIGRAM, QD
     Route: 048
     Dates: start: 20210325
  5. TUCATINIB [Suspect]
     Active Substance: TUCATINIB
     Dosage: 250 MILLIGRAM, BID
     Route: 048
     Dates: start: 20210414
  6. CAPECITABINE [Suspect]
     Active Substance: CAPECITABINE
     Indication: HER2 positive breast cancer
     Dosage: 1600 MILLIGRAM, BID
     Route: 048
     Dates: start: 20210219
  7. CAPECITABINE [Suspect]
     Active Substance: CAPECITABINE
     Dosage: 1300 MILLIGRAM, BID
     Route: 048
     Dates: start: 20210430
  8. PREGABALIN [Concomitant]
     Active Substance: PREGABALIN
     Dosage: UNK
  9. METOCLOPRAMIDE [Concomitant]
     Active Substance: METOCLOPRAMIDE
     Dosage: UNK

REACTIONS (4)
  - Hyperbilirubinaemia [Recovered/Resolved]
  - Hepatic cytolysis [Recovered/Resolved]
  - Neutropenia [Unknown]
  - Thrombocytopenia [Unknown]

NARRATIVE: CASE EVENT DATE: 20210317
